FAERS Safety Report 24587714 (Version 1)
Quarter: 2024Q4

REPORT INFORMATION
  Report Type: Spontaneous
  Country: US (occurrence: US)
  Receive Date: 20241107
  Receipt Date: 20241107
  Transmission Date: 20250114
  Serious: Yes (Hospitalization, Other)
  Sender: BAXTER
  Company Number: US-BAXTER-2024BAX026650

PATIENT
  Age: 19 Year
  Sex: Female
  Weight: 36 kg

DRUGS (3)
  1. CLINOLIPID [Suspect]
     Active Substance: OLIVE OIL\SOYBEAN OIL
     Dosage: 35 MG THREE TIMES WEEKLY
     Route: 065
     Dates: start: 20240430
  2. OMEGAVEN [Suspect]
     Active Substance: FISH OIL
     Dosage: UNK
     Route: 065
     Dates: start: 202409
  3. BENADRYL [Concomitant]
     Active Substance: DIPHENHYDRAMINE HYDROCHLORIDE
     Indication: Mast cell activation syndrome
     Dosage: CONTINUOUS (UNKNOWN MANUFACTURER) 24 HR/DAY
     Route: 042
     Dates: start: 202208

REACTIONS (10)
  - Sepsis [Unknown]
  - Musculoskeletal chest pain [Unknown]
  - Agitation [Unknown]
  - Liver function test increased [Unknown]
  - Flushing [Unknown]
  - Feeling hot [Unknown]
  - Pharyngeal swelling [Recovered/Resolved]
  - Malnutrition [Unknown]
  - Nausea [Unknown]
  - Pruritus [Unknown]

NARRATIVE: CASE EVENT DATE: 20240601
